FAERS Safety Report 4823250-9 (Version None)
Quarter: 2005Q4

REPORT INFORMATION
  Report Type: 
  Country: None (occurrence: None)
  Receive Date: 20051107
  Receipt Date: 20051024
  Transmission Date: 20060501
  Serious: Yes (Life-Threatening)
  Sender: FDA-Public Use
  Company Number: 2005P1000490

PATIENT
  Age: 87 Year
  Sex: Female

DRUGS (5)
  1. NICARDIPINE HYDROCHLORIDE [Suspect]
     Indication: HYPERTENSION
     Dosage: .5MG;1X
  2. BUPIVACAINE HCL [Concomitant]
  3. ATROPINE [Concomitant]
  4. HYDROXYZINE HYDROCHLORIDE [Concomitant]
  5. LIDOCAINE [Concomitant]

REACTIONS (3)
  - AUTONOMIC NERVOUS SYSTEM IMBALANCE [None]
  - BRADYCARDIA [None]
  - CARDIAC ARREST [None]
